FAERS Safety Report 14701734 (Version 1)
Quarter: 2018Q1

REPORT INFORMATION
  Report Type: Spontaneous
  Country: CA (occurrence: CA)
  Receive Date: 20180331
  Receipt Date: 20180331
  Transmission Date: 20180509
  Serious: Yes (Hospitalization, Other)
  Sender: FDA-Public Use
  Company Number: CA-ABBVIE-18K-028-2305760-00

PATIENT
  Age: 37 Year
  Sex: Male

DRUGS (8)
  1. HUMIRA [Suspect]
     Active Substance: ADALIMUMAB
     Indication: CROHN^S DISEASE
     Route: 058
     Dates: start: 2013, end: 2015
  2. METRONIDAZOLE. [Concomitant]
     Active Substance: METRONIDAZOLE
     Indication: PRODUCT USED FOR UNKNOWN INDICATION
  3. IMODIUM [Concomitant]
     Active Substance: LOPERAMIDE HYDROCHLORIDE
     Indication: PRODUCT USED FOR UNKNOWN INDICATION
  4. AMLODIPINE [Concomitant]
     Active Substance: AMLODIPINE BESYLATE
     Indication: PRODUCT USED FOR UNKNOWN INDICATION
  5. HUMIRA [Suspect]
     Active Substance: ADALIMUMAB
     Route: 058
     Dates: start: 2015
  6. ENOXAPARIN [Concomitant]
     Active Substance: ENOXAPARIN
     Indication: PRODUCT USED FOR UNKNOWN INDICATION
     Route: 058
  7. PANTOPRAZOLE [Concomitant]
     Active Substance: PANTOPRAZOLE
     Indication: PRODUCT USED FOR UNKNOWN INDICATION
  8. THIAMINE. [Concomitant]
     Active Substance: THIAMINE
     Indication: PRODUCT USED FOR UNKNOWN INDICATION

REACTIONS (34)
  - Enterocolonic fistula [Unknown]
  - Abdominal pain lower [Recovered/Resolved]
  - Dehydration [Unknown]
  - Crohn^s disease [Recovered/Resolved]
  - Crohn^s disease [Unknown]
  - Gastrointestinal obstruction [Recovered/Resolved]
  - Gout [Recovered/Resolved]
  - Abdominal distension [Recovering/Resolving]
  - Insomnia [Recovered/Resolved]
  - Constipation [Recovered/Resolved]
  - Dyschezia [Unknown]
  - Inappropriate schedule of drug administration [Unknown]
  - Loss of consciousness [Recovered/Resolved]
  - Small intestinal obstruction [Unknown]
  - Crohn^s disease [Recovered/Resolved]
  - Frequent bowel movements [Recovered/Resolved]
  - Nausea [Unknown]
  - Oral pain [Recovered/Resolved]
  - Constipation [Recovered/Resolved]
  - Abdominal distension [Recovered/Resolved]
  - Hypovolaemia [Unknown]
  - Fall [Unknown]
  - Intestinal fistula [Unknown]
  - Lactose intolerance [Unknown]
  - Vomiting [Recovered/Resolved]
  - Tooth infection [Unknown]
  - Gastrointestinal obstruction [Recovered/Resolved]
  - Gastrointestinal stenosis [Unknown]
  - Abdominal discomfort [Unknown]
  - Vomiting [Unknown]
  - White blood cell count increased [Unknown]
  - Abdominal pain [Recovered/Resolved]
  - Gastrointestinal sounds abnormal [Recovering/Resolving]
  - Drug effect decreased [Not Recovered/Not Resolved]

NARRATIVE: CASE EVENT DATE: 2014
